FAERS Safety Report 20111869 (Version 1)
Quarter: 2021Q4

REPORT INFORMATION
  Report Type: Spontaneous
  Country: DE (occurrence: DE)
  Receive Date: 20211125
  Receipt Date: 20211125
  Transmission Date: 20220303
  Serious: Yes (Other)
  Sender: FDA-Public Use
  Company Number: DE-MYLANLABS-2020M1067709

PATIENT
  Sex: Female
  Weight: 76 kg

DRUGS (7)
  1. ADALIMUMAB [Suspect]
     Active Substance: ADALIMUMAB
     Indication: Product used for unknown indication
     Dosage: UNK
     Route: 065
  2. TOFACITINIB [Suspect]
     Active Substance: TOFACITINIB
     Indication: Rheumatoid arthritis
     Dosage: 5 MILLIGRAM, BID (1-0-1)
     Route: 048
     Dates: start: 20180726, end: 20200419
  3. DICLOFENAC [Concomitant]
     Active Substance: DICLOFENAC
     Indication: Rheumatoid arthritis
     Dosage: 75 MILLIGRAM, PRN
     Route: 048
  4. PROLIA [Concomitant]
     Active Substance: DENOSUMAB
     Indication: Rheumatoid arthritis
     Dosage: 60 MILLIGRAM, EVERY 6 MONTHS
     Route: 058
  5. PREDNISONE [Concomitant]
     Active Substance: PREDNISONE
     Indication: Rheumatoid arthritis
     Dosage: 10 MILLIGRAM
     Route: 048
  6. ERGOCALCIFEROL [Concomitant]
     Active Substance: ERGOCALCIFEROL
     Indication: Rheumatoid arthritis
     Dosage: 1000 INTERNATIONAL UNIT
     Route: 048
  7. GELONIDA [ACETYLSALICYLIC ACID;CODEINE PHOSPHATE;PHENACETIN] [Concomitant]
     Indication: Rheumatoid arthritis
     Dosage: PRN
     Route: 048

REACTIONS (2)
  - Hepatotoxicity [Unknown]
  - Drug ineffective [Not Recovered/Not Resolved]
